FAERS Safety Report 10064340 (Version 1)
Quarter: 2014Q2

REPORT INFORMATION
  Report Type: Report from Study
  Country: JP (occurrence: JP)
  Receive Date: 20140408
  Receipt Date: 20140408
  Transmission Date: 20141212
  Serious: Yes (Other)
  Sender: FDA-Public Use
  Company Number: JP-ACCORD-022965

PATIENT
  Age: 70 Year
  Sex: Male

DRUGS (3)
  1. PACLITAXEL/PACLITAXEL LIPOSOME [Suspect]
     Indication: NON-SMALL CELL LUNG CANCER
     Dosage: 4 CYCLE
  2. BEVACIZUMAB [Suspect]
     Indication: NON-SMALL CELL LUNG CANCER
     Dosage: 4 CYCLE OF CP_B TREATMENT WITH 10 CYCLE OF MAINTAINCE THERAPY
  3. CARBOPLATIN [Suspect]
     Indication: NON-SMALL CELL LUNG CANCER
     Dosage: 5 AREA UNDER CURVE,?4 CYCLE

REACTIONS (5)
  - Hypertension [Unknown]
  - Neutropenia [Unknown]
  - Haemoglobin decreased [Unknown]
  - Treatment failure [Unknown]
  - Disease progression [Unknown]
